FAERS Safety Report 11953661 (Version 2)
Quarter: 2016Q3

REPORT INFORMATION
  Report Type: Report from Study
  Country: DK (occurrence: DK)
  Receive Date: 20160126
  Receipt Date: 20160923
  Transmission Date: 20161109
  Serious: Yes (Hospitalization)
  Sender: FDA-Public Use
  Company Number: DK-BAXALTA-2016BLT000320

PATIENT
  Age: 20 Year
  Sex: Male
  Weight: 78 kg

DRUGS (14)
  1. HYQVIA [Suspect]
     Active Substance: HUMAN IMMUNOGLOBULIN G\HYALURONIDASE RECOMBINANT HUMAN
     Dosage: UNK
     Dates: start: 20150916, end: 20150916
  2. HYQVIA [Suspect]
     Active Substance: HUMAN IMMUNOGLOBULIN G\HYALURONIDASE RECOMBINANT HUMAN
     Dosage: 300 ML IG, 15 ML RHUPH20, ONCE
     Route: 058
     Dates: start: 20150813, end: 20150813
  3. PARACETAMOL [Concomitant]
     Active Substance: ACETAMINOPHEN
     Indication: HEADACHE
     Dosage: 1000 UNK, TABLET, ONCE
     Route: 048
     Dates: start: 20151111, end: 20151111
  4. HYQVIA [Suspect]
     Active Substance: HUMAN IMMUNOGLOBULIN G\HYALURONIDASE RECOMBINANT HUMAN
     Dosage: 600 ML IG, 15 ML RHUPH20, ONCE
     Route: 058
     Dates: start: 20150713, end: 20150713
  5. HYQVIA [Suspect]
     Active Substance: HUMAN IMMUNOGLOBULIN G\HYALURONIDASE RECOMBINANT HUMAN
     Dosage: 600 ML IG, 30 ML RHUPH20, ONCE
     Route: 058
     Dates: start: 20150415, end: 20150415
  6. HYQVIA [Suspect]
     Active Substance: HUMAN IMMUNOGLOBULIN G\HYALURONIDASE RECOMBINANT HUMAN
     Dosage: 300 ML IG, 15 ML RHUPH20, ONCE
     Route: 058
     Dates: start: 20150401, end: 20150401
  7. HYQVIA [Suspect]
     Active Substance: HUMAN IMMUNOGLOBULIN G\HYALURONIDASE RECOMBINANT HUMAN
     Dosage: 600 ML IG, 15 ML RHUPH20, ONCE
     Route: 058
     Dates: start: 20150613, end: 20150613
  8. HYQVIA [Suspect]
     Active Substance: HUMAN IMMUNOGLOBULIN G\HYALURONIDASE RECOMBINANT HUMAN
     Indication: EVANS SYNDROME
     Dosage: 600 ML IG, 15 ML RHUPH20
     Route: 058
     Dates: start: 20151210, end: 20151210
  9. HYQVIA [Suspect]
     Active Substance: HUMAN IMMUNOGLOBULIN G\HYALURONIDASE RECOMBINANT HUMAN
     Indication: IMMUNODEFICIENCY
     Dosage: 600 ML IG, 15 ML RHUPH20, ONCE
     Route: 058
     Dates: start: 20151010, end: 20151010
  10. HYQVIA [Suspect]
     Active Substance: HUMAN IMMUNOGLOBULIN G\HYALURONIDASE RECOMBINANT HUMAN
     Dosage: UNK
     Dates: start: 20150713, end: 20150713
  11. HYQVIA [Suspect]
     Active Substance: HUMAN IMMUNOGLOBULIN G\HYALURONIDASE RECOMBINANT HUMAN
     Dosage: 200 ML IG, 15 ML RHUPH20, ONCE
     Route: 058
     Dates: start: 20150325, end: 20150325
  12. HYQVIA [Suspect]
     Active Substance: HUMAN IMMUNOGLOBULIN G\HYALURONIDASE RECOMBINANT HUMAN
     Dosage: 600 ML IG, 15 ML RHUPH20, ONCE
     Route: 058
     Dates: start: 20150916, end: 20150916
  13. HYQVIA [Suspect]
     Active Substance: HUMAN IMMUNOGLOBULIN G\HYALURONIDASE RECOMBINANT HUMAN
     Dosage: 600 ML IG, 15 ML RHUPH20, ONCE
     Route: 058
     Dates: start: 20150513, end: 20150513
  14. HYQVIA [Suspect]
     Active Substance: HUMAN IMMUNOGLOBULIN G\HYALURONIDASE RECOMBINANT HUMAN
     Dosage: UNK
     Dates: start: 20150813, end: 20150813

REACTIONS (1)
  - Aspergillus infection [Recovered/Resolved]

NARRATIVE: CASE EVENT DATE: 20151230
